FAERS Safety Report 5719380-X (Version None)
Quarter: 2008Q2

REPORT INFORMATION
  Report Type: 
  Country: None (occurrence: None)
  Receive Date: 20080428
  Receipt Date: 20080423
  Transmission Date: 20081010
  Serious: Yes (Other)
  Sender: FDA-Public Use
  Company Number: US-KINGPHARMUSA00001-K200800462

PATIENT

DRUGS (2)
  1. ALTACE [Suspect]
     Indication: HYPERTENSION
     Dosage: 10 MG, QD
     Dates: start: 20071027, end: 20080314
  2. BENDROFLUMETHIAZIDE [Concomitant]
     Dosage: 2.5 MG, UNK

REACTIONS (4)
  - ALOPECIA [None]
  - COUGH [None]
  - PRURITUS [None]
  - VISUAL DISTURBANCE [None]
